FAERS Safety Report 6788016-1 (Version None)
Quarter: 2010Q2

REPORT INFORMATION
  Report Type: 
  Country: None (occurrence: None)
  Receive Date: 20100623
  Receipt Date: 20071206
  Transmission Date: 20101027
  Serious: Yes (Other)
  Sender: FDA-Public Use
  Company Number: US-PFIZER INC-2007103421

PATIENT
  Sex: Male

DRUGS (7)
  1. SOLU-MEDROL [Suspect]
     Indication: KIDNEY TRANSPLANT REJECTION
     Route: 042
     Dates: start: 20071121, end: 20071101
  2. CELLCEPT [Concomitant]
  3. LOPRESSOR [Concomitant]
  4. PEPCID [Concomitant]
  5. PROGRAF [Concomitant]
  6. TAMSULOSIN HCL [Concomitant]
  7. LIPITOR [Concomitant]

REACTIONS (2)
  - HYPERTENSION [None]
  - URTICARIA [None]
